FAERS Safety Report 7128712-X (Version None)
Quarter: 2010Q4

REPORT INFORMATION
  Report Type: 
  Country: None (occurrence: None)
  Receive Date: 20101130
  Receipt Date: 20101122
  Transmission Date: 20110411
  Serious: Yes (Other)
  Sender: FDA-Public Use
  Company Number: BR-ROCHE-730737

PATIENT
  Sex: Female
  Weight: 64 kg

DRUGS (6)
  1. TOCILIZUMAB [Suspect]
     Indication: RHEUMATOID ARTHRITIS
     Dosage: ROUTE: ENDOVENOUS; FORM: INFUSION
     Route: 042
     Dates: start: 20100723
  2. PREDNISONE [Concomitant]
     Dosage: TAKEN IN THE MORNING
  3. METHOTREXATE [Concomitant]
     Dosage: DRUG REPORTED AS TECNOMET; 8 TABLETS EVERY MONDAY
  4. CALCIUM [Concomitant]
     Dosage: CALCITRAM B3; DAILY DOSE
  5. FOLIC ACID [Concomitant]
  6. CALCITRANS [Concomitant]
     Dosage: DRUG: CALCITRAN D3

REACTIONS (8)
  - DECREASED APPETITE [None]
  - DRUG INEFFECTIVE [None]
  - MUSCULOSKELETAL DISORDER [None]
  - NAUSEA [None]
  - PAIN [None]
  - PAIN IN EXTREMITY [None]
  - PARAESTHESIA [None]
  - SYNCOPE [None]
